FAERS Safety Report 4398452-9 (Version None)
Quarter: 2004Q2

REPORT INFORMATION
  Report Type: 
  Country: None (occurrence: None)
  Receive Date: 20040621
  Receipt Date: 20040127
  Transmission Date: 20050107
  Serious: Yes (Other)
  Sender: FDA-Public Use
  Company Number: USA-2004-0012670

PATIENT
  Age: 31 Year
  Sex: Male
  Weight: 76.2 kg

DRUGS (5)
  1. OXYCONTIN [Suspect]
     Dosage: 80 MG, Q12H
     Dates: start: 20020308, end: 20020914
  2. CELEBREX [Concomitant]
  3. XANAX [Concomitant]
  4. LORTAB [Concomitant]
  5. SOMA [Concomitant]

REACTIONS (1)
  - DRUG ABUSER [None]
